FAERS Safety Report 8142119 (Version 2)
Quarter: 2013Q1

REPORT INFORMATION
  Report Type: Spontaneous
  Country: US (occurrence: US)
  Receive Date: 20110919
  Receipt Date: 20130114
  Transmission Date: 20140127
  Serious: Yes (Other)
  Sender: FDA-Public Use
  Company Number: US-ROCHE-802081

PATIENT
  Sex: Female
  Weight: 70.37 kg

DRUGS (2)
  1. ACCUTANE [Suspect]
     Indication: PRODUCT USED FOR UNKNOWN INDICATION
     Route: 065
     Dates: start: 198209, end: 198302
  2. ACCUTANE [Suspect]
     Route: 065
     Dates: start: 198708, end: 198712

REACTIONS (5)
  - Inflammatory bowel disease [Unknown]
  - Diverticulitis [Unknown]
  - Diverticulum [Unknown]
  - Injury [Unknown]
  - Depression [Unknown]
